FAERS Safety Report 4292807-9 (Version None)
Quarter: 2004Q1

REPORT INFORMATION
  Report Type: 
  Country: None (occurrence: None)
  Receive Date: 20040210
  Receipt Date: 20040130
  Transmission Date: 20041129
  Serious: Yes (Other)
  Sender: FDA-Public Use
  Company Number: FR-JNJFOC-20040201339

PATIENT
  Age: 25 Year
  Sex: Female
  Weight: 55 kg

DRUGS (1)
  1. REMICADE [Suspect]
     Indication: ANKYLOSING SPONDYLITIS
     Dosage: 275 MG, INTRAVENOUS
     Route: 042
     Dates: start: 20030730, end: 20040121

REACTIONS (5)
  - ASTHMA [None]
  - COUGH [None]
  - HYPERVENTILATION [None]
  - PYREXIA [None]
  - RESPIRATORY DISORDER [None]
